FAERS Safety Report 4716897-1 (Version None)
Quarter: 2005Q3

REPORT INFORMATION
  Report Type: 
  Country: None (occurrence: None)
  Receive Date: 20050714
  Receipt Date: 20050629
  Transmission Date: 20060218
  Serious: Yes (Other)
  Sender: FDA-Public Use
  Company Number: S05-UKI-01476-01

PATIENT
  Sex: Female

DRUGS (1)
  1. EBIXA (MEMANTINE) [Suspect]
     Dosage: 10 MG BID PO
     Route: 048

REACTIONS (2)
  - COGWHEEL RIGIDITY [None]
  - PARKINSONISM [None]
